FAERS Safety Report 10750533 (Version 2)
Quarter: 2015Q2

REPORT INFORMATION
  Report Type: Spontaneous
  Country: IE (occurrence: IE)
  Receive Date: 20150130
  Receipt Date: 20150430
  Transmission Date: 20150821
  Serious: Yes (Hospitalization)
  Sender: FDA-Public Use
  Company Number: IE-ROCHE-1528362

PATIENT
  Age: 61 Year
  Sex: Male
  Weight: 60.7 kg

DRUGS (12)
  1. SEPTRIN [Concomitant]
     Active Substance: SULFAMETHOXAZOLE\TRIMETHOPRIM
  2. FUROSEMIDE. [Concomitant]
     Active Substance: FUROSEMIDE
  3. THIAMINE [Concomitant]
     Active Substance: THIAMINE
  4. PREZISTA [Concomitant]
     Active Substance: DARUNAVIR ETHANOLATE
  5. NORVIR [Concomitant]
     Active Substance: RITONAVIR
  6. METHADONE [Concomitant]
     Active Substance: METHADONE HYDROCHLORIDE
  7. HARVONI [Suspect]
     Active Substance: LEDIPASVIR\SOFOSBUVIR
     Indication: HEPATITIS C
     Route: 048
     Dates: start: 20141223, end: 20150109
  8. LANSOPRAZOLE. [Concomitant]
     Active Substance: LANSOPRAZOLE
  9. COPEGUS [Suspect]
     Active Substance: RIBAVIRIN
     Indication: HEPATITIS C
     Dosage: 400 MG IN THE MORNING AND AND 600 MG IN THE EVENING
     Route: 065
     Dates: start: 20141223, end: 20150109
  10. TRUVADA [Concomitant]
     Active Substance: EMTRICITABINE\TENOFOVIR DISOPROXIL FUMARATE
  11. DIAZEPAM. [Concomitant]
     Active Substance: DIAZEPAM
  12. LAXOSE [Concomitant]

REACTIONS (3)
  - Haemoglobin decreased [Not Recovered/Not Resolved]
  - Blood potassium decreased [Not Recovered/Not Resolved]
  - Blood phosphorus decreased [Not Recovered/Not Resolved]

NARRATIVE: CASE EVENT DATE: 20150109
